FAERS Safety Report 7337920-4 (Version None)
Quarter: 2011Q1

REPORT INFORMATION
  Report Type: 
  Country: None (occurrence: None)
  Receive Date: 20110308
  Receipt Date: 20110209
  Transmission Date: 20110831
  Serious: No
  Sender: FDA-Public Use
  Company Number: US-B.I. PHARMACEUTICALS,INC./RIDGEFIELD-2011-BP-01100BP

PATIENT
  Sex: Female

DRUGS (7)
  1. FEXOFENADINE [Concomitant]
     Indication: SEASONAL ALLERGY
     Dosage: 60 MG
  2. ADVAIR DISKUS 100/50 [Concomitant]
     Indication: ASTHMA
  3. MULTIVITAMIN [Concomitant]
  4. XOPENEX [Concomitant]
     Indication: ASTHMA
  5. ZOCOR [Concomitant]
     Indication: BLOOD CHOLESTEROL INCREASED
  6. PRADAXA [Suspect]
     Indication: ATRIAL FIBRILLATION
     Dosage: 300 MG
     Route: 048
     Dates: start: 20101201
  7. DILTIAZEM [Concomitant]
     Indication: PALPITATIONS

REACTIONS (2)
  - BODY TEMPERATURE INCREASED [None]
  - FATIGUE [None]
